FAERS Safety Report 12787280 (Version 1)
Quarter: 2016Q3

REPORT INFORMATION
  Report Type: Report from Study
  Country: US (occurrence: US)
  Receive Date: 20160927
  Receipt Date: 20160927
  Transmission Date: 20161109
  Serious: Yes (Hospitalization, Other)
  Sender: FDA-Public Use
  Company Number: US-ROCHE-790055

PATIENT
  Age: 67 Year
  Sex: Female
  Weight: 89.35 kg

DRUGS (7)
  1. BEVACIZUMAB [Suspect]
     Active Substance: BEVACIZUMAB
     Dosage: COURSE ID:2
     Route: 042
     Dates: start: 20110609
  2. IXABEPILONE [Suspect]
     Active Substance: IXABEPILONE
     Dosage: COURSE ID:1
     Route: 042
  3. CARBOPLATIN. [Suspect]
     Active Substance: CARBOPLATIN
     Indication: ENDOMETRIAL ADENOCARCINOMA
     Dosage: LAST ADMINISTERED DATE:09 JUNE 2011, 6 AUC OVER 30 MINUTES ON DAY 1 X 6 CYCLES
     Route: 042
     Dates: start: 20110428
  4. IXABEPILONE [Suspect]
     Active Substance: IXABEPILONE
     Indication: ENDOMETRIAL ADENOCARCINOMA
     Dosage: LAST ADMINISTERED DATE: 09/JUN/2011, OVER 1 HOUR ON DAY 1 X 6 CYCLES
     Route: 042
  5. IXABEPILONE [Suspect]
     Active Substance: IXABEPILONE
     Dosage: COURSE ID:2
     Route: 042
  6. BEVACIZUMAB [Suspect]
     Active Substance: BEVACIZUMAB
     Dosage: COURSE ID:1
     Route: 042
     Dates: start: 20110519
  7. BEVACIZUMAB [Suspect]
     Active Substance: BEVACIZUMAB
     Indication: ENDOMETRIAL ADENOCARCINOMA
     Dosage: LAST ADMINISTERED DATE: 09/JUN/2011, OVER 30-90 MINTUTES ON DAY 1 X 6 CYCLES
     Route: 042
     Dates: start: 20110428

REACTIONS (10)
  - Neutrophil count decreased [Unknown]
  - Abdominal pain [Recovered/Resolved]
  - Dyspnoea [Recovered/Resolved]
  - Small intestinal obstruction [Recovered/Resolved]
  - Anaemia [Unknown]
  - Decreased appetite [Recovered/Resolved]
  - Vomiting [Recovered/Resolved]
  - Dehydration [Recovered/Resolved]
  - Nausea [Recovered/Resolved]
  - White blood cell count decreased [Unknown]

NARRATIVE: CASE EVENT DATE: 20110619
